FAERS Safety Report 6492682-8 (Version None)
Quarter: 2009Q4

REPORT INFORMATION
  Report Type: 
  Country: None (occurrence: None)
  Receive Date: 20091214
  Receipt Date: 20091202
  Transmission Date: 20100525
  Serious: Yes (Hospitalization)
  Sender: FDA-Public Use
  Company Number: IT-PFIZER INC-2009305591

PATIENT
  Age: 88 Year
  Sex: Male

DRUGS (2)
  1. CLINDAMYCIN HCL [Suspect]
     Dosage: 600 MG/24H, 1X/DAY
     Route: 030
     Dates: start: 20091119, end: 20091123
  2. AMIKACIN SULFATE [Concomitant]
     Indication: ANTIBIOTIC PROPHYLAXIS
     Dosage: 1 G/DAY
     Route: 030
     Dates: start: 20091119, end: 20091123

REACTIONS (1)
  - LEUKOCYTOCLASTIC VASCULITIS [None]
